FAERS Safety Report 20575978 (Version 1)
Quarter: 2022Q1

REPORT INFORMATION
  Report Type: Spontaneous
  Country: DE (occurrence: DE)
  Receive Date: 20220310
  Receipt Date: 20220310
  Transmission Date: 20220423
  Serious: Yes (Death, Other)
  Sender: FDA-Public Use
  Company Number: DE-CELLTRION INC.-2022DE002578

PATIENT

DRUGS (2)
  1. RITUXIMAB [Suspect]
     Active Substance: RITUXIMAB
     Indication: Diffuse large B-cell lymphoma
     Route: 065
  2. PEMBROLIZUMAB [Suspect]
     Active Substance: PEMBROLIZUMAB
     Indication: Diffuse large B-cell lymphoma
     Dosage: 2 MG/KG BODY WEIGHT

REACTIONS (7)
  - Death [Fatal]
  - Progressive multifocal leukoencephalopathy [Unknown]
  - Hemianopia [Unknown]
  - Disease progression [Unknown]
  - Lymphoma [Unknown]
  - Disease recurrence [Unknown]
  - Iris cyst [Unknown]
